FAERS Safety Report 10313841 (Version 1)
Quarter: 2014Q3

REPORT INFORMATION
  Report Type: Spontaneous
  Country: GB (occurrence: GB)
  Receive Date: 20140718
  Receipt Date: 20140718
  Transmission Date: 20150326
  Serious: Yes (Other)
  Sender: FDA-Public Use
  Company Number: PHHY2014GB085565

PATIENT
  Age: 51 Year
  Sex: Male
  Weight: 85.72 kg

DRUGS (6)
  1. ORAMORPH SR SUSTAINED RELEASE [Concomitant]
     Active Substance: MORPHINE SULFATE
  2. PARACETAMOL [Concomitant]
     Active Substance: ACETAMINOPHEN
  3. SALBUTAMOL [Concomitant]
     Active Substance: ALBUTEROL
  4. AMOXICILLIN. [Suspect]
     Active Substance: AMOXICILLIN
     Indication: LOWER RESPIRATORY TRACT INFECTION
  5. MXL [Interacting]
     Active Substance: MORPHINE SULFATE
     Indication: PAIN
     Dosage: 60 MG, QD
     Route: 048
     Dates: start: 200707
  6. CLOPIDOGREL [Concomitant]
     Active Substance: CLOPIDOGREL BISULFATE

REACTIONS (5)
  - Drug effect decreased [None]
  - Sleep disorder [Recovering/Resolving]
  - Inhibitory drug interaction [Recovering/Resolving]
  - Neuralgia [Recovering/Resolving]
  - Muscle twitching [Recovering/Resolving]

NARRATIVE: CASE EVENT DATE: 20140618
